FAERS Safety Report 13627369 (Version 1)
Quarter: 2017Q2

REPORT INFORMATION
  Report Type: Spontaneous
  Country: IE (occurrence: IE)
  Receive Date: 20170607
  Receipt Date: 20170607
  Transmission Date: 20170830
  Serious: Yes (Other)
  Sender: FDA-Public Use
  Company Number: IE-MYLANLABS-2017M1033273

PATIENT

DRUGS (9)
  1. ONDANSETRON 2 MG/ML SOLUTION FOR INJECTION OR INFUSION [Suspect]
     Active Substance: ONDANSETRON
     Indication: PROPHYLAXIS OF NAUSEA AND VOMITING
     Dosage: ONE DOSE
     Route: 042
     Dates: start: 20170503, end: 20170503
  2. PANTOPRAZOLE [Concomitant]
     Active Substance: PANTOPRAZOLE
     Dosage: PPI
     Dates: start: 20170503, end: 20170503
  3. PARACETAMOL [Concomitant]
     Active Substance: ACETAMINOPHEN
     Dosage: POST OP ANALGESIA
  4. GABAPENTIN. [Concomitant]
     Active Substance: GABAPENTIN
     Dosage: PRE MED
     Dates: start: 20170503, end: 20170503
  5. CEFUROXIME. [Concomitant]
     Active Substance: CEFUROXIME
     Dosage: PROHYLACTIC ANTIBIOTIC
  6. CYKLOKAPRON [Concomitant]
     Active Substance: TRANEXAMIC ACID
     Dosage: INTRAOPERATIVE USE
  7. PROPOFOL. [Concomitant]
     Active Substance: PROPOFOL
     Dosage: INTRAOPERATIVE SEDATION
     Dates: start: 20170503, end: 20170503
  8. OXYNORM [Concomitant]
     Active Substance: OXYCODONE HYDROCHLORIDE
     Dosage: POST OP ANALGESIA
     Dates: start: 20170503
  9. TEMAZEPAM. [Concomitant]
     Active Substance: TEMAZEPAM
     Dosage: PRE MED

REACTIONS (2)
  - Tremor [Recovered/Resolved]
  - Dyskinesia [Recovered/Resolved]

NARRATIVE: CASE EVENT DATE: 20170503
